FAERS Safety Report 6747700-6 (Version None)
Quarter: 2010Q2

REPORT INFORMATION
  Report Type: 
  Country: None (occurrence: None)
  Receive Date: 20100528
  Receipt Date: 20100520
  Transmission Date: 20101027
  Serious: Yes (Disabling)
  Sender: FDA-Public Use
  Company Number: SE-GILEAD-2010-0029363

PATIENT
  Sex: Male

DRUGS (4)
  1. VIREAD [Suspect]
     Indication: HEPATITIS B
     Route: 048
     Dates: start: 20091217, end: 20100517
  2. HEPSERA [Concomitant]
     Indication: HEPATITIS B
     Route: 048
     Dates: start: 20100517
  3. HEPSERA [Concomitant]
     Dates: end: 20091217
  4. ZEFFIX [Concomitant]
     Route: 048

REACTIONS (1)
  - PHOTOSENSITIVITY REACTION [None]
